FAERS Safety Report 5175184-0 (Version None)
Quarter: 2006Q4

REPORT INFORMATION
  Report Type: 
  Country: None (occurrence: None)
  Receive Date: 20061206
  Receipt Date: 20061121
  Transmission Date: 20070319
  Serious: Yes (Other)
  Sender: FDA-Public Use
  Company Number: TNZFR200600136

PATIENT
  Sex: 0
  Weight: 2.33 kg

DRUGS (3)
  1. INNOHEP [Suspect]
     Indication: OFF LABEL USE
     Dosage: TRANSPLACENTAL
     Route: 064
     Dates: start: 20050509
  2. INNOHEP [Suspect]
     Indication: THROMBOSIS PROPHYLAXIS
     Dosage: TRANSPLACENTAL
     Route: 064
     Dates: start: 20050509
  3. ASPIRIN [Concomitant]

REACTIONS (5)
  - CAESAREAN SECTION [None]
  - DRUG EXPOSURE DURING PREGNANCY [None]
  - LIFE SUPPORT [None]
  - NEONATAL RESPIRATORY DISTRESS SYNDROME [None]
  - PRE-ECLAMPSIA [None]
